FAERS Safety Report 6267801-9 (Version None)
Quarter: 2009Q3

REPORT INFORMATION
  Report Type: 
  Country: None (occurrence: None)
  Receive Date: 20090714
  Receipt Date: 20090702
  Transmission Date: 20100115
  Serious: Yes (Other)
  Sender: FDA-Public Use
  Company Number: PT-PFIZER INC-2009235742

PATIENT
  Age: 85 Year

DRUGS (5)
  1. PREGABALIN [Suspect]
     Indication: NEURALGIA
     Dosage: 150 MG, 1X/DAY
     Route: 048
     Dates: start: 20090201, end: 20090201
  2. PARACETAMOL [Concomitant]
     Indication: NEURALGIA
     Dosage: UNK
     Route: 048
     Dates: start: 20090201, end: 20090201
  3. ETODOLAC [Concomitant]
     Indication: NEURALGIA
     Dosage: UNK
     Dates: start: 20090201, end: 20090201
  4. CODEINE PHOSPHATE HEMIHYDRATE [Concomitant]
     Indication: NEURALGIA
     Dosage: UNK
     Route: 048
     Dates: start: 20090201, end: 20090201
  5. VALACICLOVIR HYDROCHLORIDE [Concomitant]
     Indication: HERPES ZOSTER
     Dosage: UNK
     Route: 048
     Dates: start: 20090201, end: 20090201

REACTIONS (3)
  - ASTHENIA [None]
  - HALLUCINATION, VISUAL [None]
  - URINARY INCONTINENCE [None]
